FAERS Safety Report 4682184-3 (Version None)
Quarter: 2005Q2

REPORT INFORMATION
  Report Type: 
  Country: None (occurrence: None)
  Receive Date: 20050603
  Receipt Date: 20050603
  Transmission Date: 20051028
  Serious: No
  Sender: FDA-Public Use
  Company Number: None

PATIENT
  Sex: Male
  Weight: 53.6 kg

DRUGS (8)
  1. FLUOROURACIL [Suspect]
     Indication: ANAL CANCER
     Dates: start: 20050321
  2. CISPLATIN [Suspect]
  3. RADIOTHERAPY [Suspect]
  4. DEXAMETHASONE [Concomitant]
  5. DOCUSATE NA [Concomitant]
  6. METOCLOPRAMIDE HCL [Concomitant]
  7. ONDANSETRON HCL [Concomitant]
  8. PROCHLORERAZINE MALEATE [Concomitant]

REACTIONS (5)
  - CALCINOSIS [None]
  - HYPONATRAEMIA [None]
  - PANCREATIC DISORDER [None]
  - PANCREATITIS ACUTE [None]
  - ULTRASOUND ABDOMEN ABNORMAL [None]
